FAERS Safety Report 19832100 (Version 1)
Quarter: 2021Q3

REPORT INFORMATION
  Report Type: Spontaneous
  Country: CN (occurrence: CN)
  Receive Date: 20210915
  Receipt Date: 20210915
  Transmission Date: 20211014
  Serious: Yes (Other)
  Sender: FDA-Public Use
  Company Number: CN-SA-2021SA293358

PATIENT
  Age: 34 Year
  Sex: Female
  Weight: 53 kg

DRUGS (3)
  1. ENOXAPARIN SODIUM. [Suspect]
     Active Substance: ENOXAPARIN SODIUM
     Indication: SYSTEMIC LUPUS ERYTHEMATOSUS
     Dosage: 0.6 ML, QD
     Route: 058
     Dates: start: 20210806, end: 20210816
  2. LEVOFLOXACIN. [Suspect]
     Active Substance: LEVOFLOXACIN
     Indication: URINARY TRACT INFECTION
     Dosage: 0.5 G, QD
     Route: 041
     Dates: start: 20210813, end: 20210815
  3. CYCLOPHOSPHAMIDE. [Suspect]
     Active Substance: CYCLOPHOSPHAMIDE
     Indication: SYSTEMIC LUPUS ERYTHEMATOSUS
     Dosage: 0.29 G, QD
     Route: 041
     Dates: start: 20210808, end: 20210808

REACTIONS (3)
  - Alanine aminotransferase increased [Recovered/Resolved]
  - Hepatic function abnormal [Recovered/Resolved]
  - Aspartate aminotransferase increased [Recovered/Resolved]

NARRATIVE: CASE EVENT DATE: 20210816
